FAERS Safety Report 21338898 (Version 1)
Quarter: 2022Q3

REPORT INFORMATION
  Report Type: Spontaneous
  Country: US (occurrence: US)
  Receive Date: 20220915
  Receipt Date: 20220915
  Transmission Date: 20221027
  Serious: No
  Sender: FDA-Public Use
  Company Number: US-VIVUS, Inc.-2022V1000265

PATIENT
  Age: 64 Year
  Sex: Male
  Weight: 92.162 kg

DRUGS (2)
  1. QSYMIA [Suspect]
     Active Substance: PHENTERMINE HYDROCHLORIDE\TOPIRAMATE
     Indication: Weight decreased
     Dosage: 1 CAPSULE/^IN THE EVENING BETWEEN 3 PM-5 PM
     Route: 048
     Dates: start: 2020
  2. QSYMIA [Suspect]
     Active Substance: PHENTERMINE HYDROCHLORIDE\TOPIRAMATE
     Indication: Weight decreased
     Dosage: 1 CAPSULE IN THE EVENING BETWEEN 3 PM- 5 PM
     Route: 048

REACTIONS (3)
  - Weight increased [Unknown]
  - Hypertension [Recovered/Resolved]
  - Stress [Unknown]

NARRATIVE: CASE EVENT DATE: 20220101
